FAERS Safety Report 13798837 (Version 1)
Quarter: 2017Q3

REPORT INFORMATION
  Report Type: Spontaneous
  Country: US (occurrence: US)
  Receive Date: 20170727
  Receipt Date: 20170727
  Transmission Date: 20171127
  Serious: No
  Sender: FDA-Public Use
  Company Number: US-JNJFOC-20161208683

PATIENT
  Sex: Male

DRUGS (3)
  1. ZYRTEC-D [Suspect]
     Active Substance: CETIRIZINE HYDROCHLORIDE\PSEUDOEPHEDRINE HYDROCHLORIDE
     Indication: LACRIMATION INCREASED
     Dosage: PRODUCT WAS STARTED APPROXIMATELY ON 05-OCT-2016
     Route: 048
     Dates: start: 2016, end: 20161115
  2. ZYRTEC-D [Suspect]
     Active Substance: CETIRIZINE HYDROCHLORIDE\PSEUDOEPHEDRINE HYDROCHLORIDE
     Indication: RHINORRHOEA
     Dosage: PRODUCT WAS STARTED APPROXIMATELY ON 05-OCT-2016
     Route: 048
     Dates: start: 2016, end: 20161115
  3. ZYRTEC-D [Suspect]
     Active Substance: CETIRIZINE HYDROCHLORIDE\PSEUDOEPHEDRINE HYDROCHLORIDE
     Indication: MULTIPLE ALLERGIES
     Dosage: PRODUCT WAS STARTED APPROXIMATELY ON 05-OCT-2016
     Route: 048
     Dates: start: 2016, end: 20161115

REACTIONS (1)
  - Drug ineffective [Unknown]
